FAERS Safety Report 22357070 (Version 1)
Quarter: 2023Q2

REPORT INFORMATION
  Report Type: Spontaneous
  Country: CN (occurrence: CN)
  Receive Date: 20230523
  Receipt Date: 20230523
  Transmission Date: 20230721
  Serious: Yes (Death, Hospitalization)
  Sender: FDA-Public Use
  Company Number: CN-STRIDES ARCOLAB LIMITED-2023SP007366

PATIENT
  Age: 75 Year
  Sex: Male

DRUGS (3)
  1. PREDNISOLONE [Suspect]
     Active Substance: PREDNISOLONE
     Indication: Bronchitis
     Dosage: UNK
     Route: 048
  2. METHYLPREDNISOLONE [Suspect]
     Active Substance: METHYLPREDNISOLONE
     Indication: Pneumonia
     Dosage: 40 MILLIGRAM PER DAY
     Route: 065
     Dates: start: 202204
  3. AMINOPHYLLINE [Concomitant]
     Active Substance: AMINOPHYLLINE
     Indication: Bronchitis
     Dosage: UNK
     Route: 065

REACTIONS (3)
  - Strongyloidiasis [Fatal]
  - Disseminated strongyloidiasis [Fatal]
  - Pneumonia [Unknown]

NARRATIVE: CASE EVENT DATE: 20220401
